FAERS Safety Report 15644012 (Version 1)
Quarter: 2018Q4

REPORT INFORMATION
  Report Type: Spontaneous
  Country: US (occurrence: US)
  Receive Date: 20181115
  Receipt Date: 20181115
  Transmission Date: 20190205
  Serious: No
  Sender: FDA-Public Use
  Company Number: None

PATIENT
  Age: 54 Year
  Sex: Female
  Weight: 70.2 kg

DRUGS (5)
  1. CORGARD [Concomitant]
     Active Substance: NADOLOL
  2. AIMOVIG [Suspect]
     Active Substance: ERENUMAB-AOOE
     Indication: MIGRAINE PROPHYLAXIS
     Dosage: ?          OTHER FREQUENCY:ENTIRE TIME;?
     Route: 030
  3. TRAMXENE [Concomitant]
  4. MAGNESIUM [Concomitant]
     Active Substance: MAGNESIUM
  5. AMBIEN [Concomitant]
     Active Substance: ZOLPIDEM TARTRATE

REACTIONS (6)
  - Throat tightness [None]
  - Fatigue [None]
  - Atrial fibrillation [None]
  - Migraine [None]
  - Condition aggravated [None]
  - Myalgia [None]

NARRATIVE: CASE EVENT DATE: 20180802
